FAERS Safety Report 7183220-5 (Version None)
Quarter: 2010Q4

REPORT INFORMATION
  Report Type: 
  Country: None (occurrence: None)
  Receive Date: 20101222
  Receipt Date: 20100125
  Transmission Date: 20110411
  Serious: No
  Sender: FDA-Public Use
  Company Number: A0841521A

PATIENT
  Age: 36 Year
  Sex: Female

DRUGS (5)
  1. FLONASE [Suspect]
     Indication: SEASONAL ALLERGY
     Route: 045
     Dates: end: 20091121
  2. NASACORT [Suspect]
     Indication: SEASONAL ALLERGY
     Dosage: 110MCG PER DAY
     Route: 065
     Dates: start: 20091121
  3. PATANASE [Suspect]
     Indication: SEASONAL ALLERGY
     Route: 065
     Dates: start: 20091121
  4. ZYRTEC [Suspect]
     Indication: SEASONAL ALLERGY
     Dates: end: 20091121
  5. UNKNOWN [Concomitant]

REACTIONS (3)
  - CHEST DISCOMFORT [None]
  - NAUSEA [None]
  - PAIN [None]
